FAERS Safety Report 11633499 (Version 2)
Quarter: 2016Q1

REPORT INFORMATION
  Report Type: Spontaneous
  Country: US (occurrence: US)
  Receive Date: 20151015
  Receipt Date: 20160105
  Transmission Date: 20160525
  Serious: Yes (Hospitalization, Other)
  Sender: FDA-Public Use
  Company Number: US-009507513-1510USA006045

PATIENT
  Age: 57 Year
  Sex: Male

DRUGS (5)
  1. AMBIEN [Concomitant]
     Active Substance: ZOLPIDEM TARTRATE
  2. JANUVIA [Suspect]
     Active Substance: SITAGLIPTIN PHOSPHATE
     Indication: DIABETES MELLITUS
     Dosage: UNK
     Route: 048
  3. GLIPIZIDE. [Concomitant]
     Active Substance: GLIPIZIDE
  4. TASIGNA [Concomitant]
     Active Substance: NILOTINIB
  5. FARXIGA [Concomitant]
     Active Substance: DAPAGLIFLOZIN PROPANEDIOL

REACTIONS (1)
  - Pancreatitis [Recovered/Resolved]
